FAERS Safety Report 13946459 (Version 1)
Quarter: 2017Q3

REPORT INFORMATION
  Report Type: Spontaneous
  Country: US (occurrence: US)
  Receive Date: 20170907
  Receipt Date: 20170907
  Transmission Date: 20171128
  Serious: Yes (Life-Threatening, Other)
  Sender: FDA-Public Use
  Company Number: US-TEVA-804252USA

PATIENT
  Sex: Female

DRUGS (1)
  1. AMIODARONE [Suspect]
     Active Substance: AMIODARONE
     Indication: ATRIAL FIBRILLATION
     Route: 065

REACTIONS (13)
  - Dyspnoea [Unknown]
  - Blindness [Unknown]
  - Adverse event [Unknown]
  - Visual impairment [Unknown]
  - Glaucoma [Unknown]
  - Cataract [Unknown]
  - Interstitial lung disease [Unknown]
  - Dyspnoea exertional [Unknown]
  - Cough [Unknown]
  - Fatigue [Unknown]
  - Toxicity to various agents [Unknown]
  - Off label use [Unknown]
  - Asthenia [Unknown]
